FAERS Safety Report 5122100-3 (Version None)
Quarter: 2006Q4

REPORT INFORMATION
  Report Type: 
  Country: None (occurrence: None)
  Receive Date: 20061004
  Receipt Date: 20061004
  Transmission Date: 20070319
  Serious: Yes (Hospitalization)
  Sender: FDA-Public Use
  Company Number: None

PATIENT
  Age: 71 Year
  Sex: Male
  Weight: 46.2669 kg

DRUGS (2)
  1. FLUORESCITE [Suspect]
     Indication: OPHTHALMOLOGICAL EXAMINATION
     Dosage: SEVERAL DROPS ONCE OPHTHALMIC
     Route: 047
     Dates: start: 20060811, end: 20060811
  2. PROPARACAINE HCL [Suspect]

REACTIONS (1)
  - EYE PAIN [None]
